FAERS Safety Report 7636920-4 (Version None)
Quarter: 2011Q3

REPORT INFORMATION
  Report Type: 
  Country: None (occurrence: None)
  Receive Date: 20110722
  Receipt Date: 20110722
  Transmission Date: 20111222
  Serious: Yes (Other)
  Sender: FDA-Public Use
  Company Number: None

PATIENT
  Age: 65 Year
  Sex: Male
  Weight: 79.3795 kg

DRUGS (1)
  1. CIPROFLOXACIN [Suspect]
     Dosage: 500MG TAB TWICE A DAY
     Dates: start: 20110531, end: 20110609

REACTIONS (3)
  - VISUAL IMPAIRMENT [None]
  - DIARRHOEA [None]
  - FATIGUE [None]
